FAERS Safety Report 6188205-3 (Version None)
Quarter: 2009Q2

REPORT INFORMATION
  Report Type: 
  Country: None (occurrence: None)
  Receive Date: 20090513
  Receipt Date: 20090414
  Transmission Date: 20091009
  Serious: Yes (Other)
  Sender: FDA-Public Use
  Company Number: US-PFIZER INC-2009201159

PATIENT
  Sex: Male

DRUGS (5)
  1. CHANTIX [Suspect]
     Indication: SMOKING CESSATION THERAPY
     Dosage: UNK
     Dates: start: 20090323
  2. MORPHINE [Concomitant]
  3. METHADONE HCL [Concomitant]
  4. SOMA [Concomitant]
  5. TRAZODONE [Concomitant]

REACTIONS (5)
  - ABNORMAL DREAMS [None]
  - ROAD TRAFFIC ACCIDENT [None]
  - SOMNOLENCE [None]
  - STRESS [None]
  - SUDDEN ONSET OF SLEEP [None]
